FAERS Safety Report 24662564 (Version 1)
Quarter: 2024Q4

REPORT INFORMATION
  Report Type: Spontaneous
  Country: US (occurrence: US)
  Receive Date: 20241126
  Receipt Date: 20241126
  Transmission Date: 20250115
  Serious: Yes (Other)
  Sender: JOHNSON AND JOHNSON
  Company Number: US-JNJFOC-20241139046

PATIENT
  Sex: Female

DRUGS (1)
  1. ELMIRON [Suspect]
     Active Substance: PENTOSAN POLYSULFATE SODIUM
     Indication: Cystitis interstitial
     Dosage: TAKE 2 CAPSULES BY MOUTH TWICE A DAY
     Route: 048
     Dates: end: 20211221

REACTIONS (3)
  - Pigmentary maculopathy [Recovering/Resolving]
  - Cataract nuclear [Unknown]
  - Off label use [Unknown]
